FAERS Safety Report 4300891-9 (Version None)
Quarter: 2004Q1

REPORT INFORMATION
  Report Type: 
  Country: None (occurrence: None)
  Receive Date: 20040220
  Receipt Date: 20030411
  Transmission Date: 20041129
  Serious: Yes (Hospitalization, Other)
  Sender: FDA-Public Use
  Company Number: WAES 0304USA01416

PATIENT
  Age: 48 Year
  Sex: Female
  Weight: 64 kg

DRUGS (9)
  1. VICODIN [Concomitant]
     Indication: PAIN IN EXTREMITY
  2. VICODIN [Concomitant]
     Indication: ARTHRALGIA
  3. NOVOLIN 70/30 [Concomitant]
     Indication: DIABETES MELLITUS NON-INSULIN-DEPENDENT
     Route: 058
  4. PRILOSEC [Concomitant]
  5. VIOXX [Suspect]
     Indication: ARTHRITIS
     Route: 048
  6. VIOXX [Suspect]
     Route: 048
     Dates: start: 20001201
  7. VIOXX [Suspect]
     Indication: INFLAMMATION
     Route: 048
  8. VIOXX [Suspect]
     Route: 048
     Dates: start: 20001201
  9. ZOCOR [Concomitant]
     Indication: BLOOD CHOLESTEROL INCREASED
     Route: 048

REACTIONS (26)
  - AMNESIA [None]
  - ANXIETY [None]
  - APHASIA [None]
  - ARTHROPATHY [None]
  - BACK PAIN [None]
  - BLOOD GLUCOSE INCREASED [None]
  - BLOOD PRESSURE INCREASED [None]
  - BRAIN DAMAGE [None]
  - CONSTIPATION [None]
  - DEPRESSION [None]
  - EMOTIONAL DISTRESS [None]
  - EPISTAXIS [None]
  - FLANK PAIN [None]
  - HEADACHE [None]
  - HEART RATE INCREASED [None]
  - INJURY [None]
  - JOINT INJURY [None]
  - LARYNGOSPASM [None]
  - NAUSEA [None]
  - PALPITATIONS [None]
  - ROTATOR CUFF SYNDROME [None]
  - SINUS CONGESTION [None]
  - SINUSITIS [None]
  - TRANSIENT ISCHAEMIC ATTACK [None]
  - VOMITING [None]
  - WHEEZING [None]
